FAERS Safety Report 5605137-7 (Version None)
Quarter: 2008Q1

REPORT INFORMATION
  Report Type: 
  Country: None (occurrence: None)
  Receive Date: 20080123
  Receipt Date: 20080116
  Transmission Date: 20080703
  Serious: Yes (Life-Threatening, Hospitalization, Other)
  Sender: FDA-Public Use
  Company Number: 2005US001667

PATIENT
  Age: 62 Year
  Sex: Male

DRUGS (22)
  1. PROGRAF [Suspect]
     Indication: PROPHYLAXIS AGAINST TRANSPLANT REJECTION
     Dosage: 4 MG, BID, ORAL; 1.5 MG, BID, ORAL
     Route: 048
     Dates: start: 20050115
  2. PROGRAF [Suspect]
     Indication: PROPHYLAXIS AGAINST TRANSPLANT REJECTION
     Dosage: 4 MG, BID, ORAL; 1.5 MG, BID, ORAL
     Route: 048
     Dates: start: 20050118
  3. MYCOPHENOLATE MOFETIL [Suspect]
     Indication: PROPHYLAXIS AGAINST TRANSPLANT REJECTION
     Dosage: 1500 MG, BID, ORAL; 1000 MG, BID, ORAL; 500 MG, BID, ORAL
     Route: 048
     Dates: start: 20050112
  4. MYCOPHENOLATE MOFETIL [Suspect]
     Indication: PROPHYLAXIS AGAINST TRANSPLANT REJECTION
     Dosage: 1500 MG, BID, ORAL; 1000 MG, BID, ORAL; 500 MG, BID, ORAL
     Route: 048
     Dates: start: 20051108
  5. PREDNISONE TAB [Suspect]
     Indication: PROPHYLAXIS AGAINST TRANSPLANT REJECTION
     Dosage: 20 MG, UID/QD, ORAL; 5 MG, BID, ORAL
     Route: 048
     Dates: end: 20060306
  6. PREDNISONE TAB [Suspect]
     Indication: PROPHYLAXIS AGAINST TRANSPLANT REJECTION
     Dosage: 20 MG, UID/QD, ORAL; 5 MG, BID, ORAL
     Route: 048
     Dates: start: 20050116
  7. METHYLPREDNISOLONE [Suspect]
     Indication: PROPHYLAXIS AGAINST TRANSPLANT REJECTION
     Dosage: 100 MG, UID/QD, IV NOS
     Route: 042
     Dates: start: 20050111, end: 20050115
  8. THYMOGLOBULIN [Suspect]
     Indication: PROPHYLAXIS AGAINST TRANSPLANT REJECTION
     Dosage: 100 MG, UID/QD, IV NOS
     Route: 042
     Dates: start: 20050111, end: 20050115
  9. DAPSONE [Concomitant]
  10. MORPHINE [Concomitant]
  11. NYSTATIN [Concomitant]
  12. PANTOPRAZOLE SODIUM [Concomitant]
  13. INSULIN GLARGINE (INSULIN GLARGINE) [Concomitant]
  14. VALGANCICLOVIR HCL [Concomitant]
  15. NIFEDIPINE [Concomitant]
  16. DOXAZOSIN MESYLATE [Concomitant]
  17. AVODART [Concomitant]
  18. INSULIN (INSULIN) [Concomitant]
  19. PROTONIX [Concomitant]
  20. VITAMIN D [Concomitant]
  21. ISOPHANE INSULIN (ISOPHANE INSULIN) [Concomitant]
  22. CALCIUM CARBONATE [Concomitant]

REACTIONS (10)
  - APHTHOUS STOMATITIS [None]
  - BUNDLE BRANCH BLOCK RIGHT [None]
  - HYPOTENSION [None]
  - INFECTION [None]
  - KIDNEY TRANSPLANT REJECTION [None]
  - MYOCARDIAL INFARCTION [None]
  - NEPHRITIS INTERSTITIAL [None]
  - NEUTROPENIA [None]
  - TACHYCARDIA [None]
  - WHITE BLOOD CELL COUNT DECREASED [None]
